FAERS Safety Report 19608849 (Version 1)
Quarter: 2021Q3

REPORT INFORMATION
  Report Type: Spontaneous
  Country: US (occurrence: US)
  Receive Date: 20210724
  Receipt Date: 20210724
  Transmission Date: 20211014
  Serious: Yes (Other)
  Sender: FDA-Public Use
  Company Number: None

PATIENT
  Age: 51 Year
  Sex: Male
  Weight: 85.5 kg

DRUGS (13)
  1. AJOVY [Suspect]
     Active Substance: FREMANEZUMAB-VFRM
     Indication: MIGRAINE
     Dosage: ?          QUANTITY:1 INJECTION(S);OTHER FREQUENCY:MONTHLY;?
     Route: 058
     Dates: start: 20210608
  2. MELATONIN [Concomitant]
     Active Substance: MELATONIN
  3. MULTIVITAMIN [Concomitant]
     Active Substance: VITAMINS
  4. MORPHINE [Concomitant]
     Active Substance: MORPHINE
  5. LOSARTAN. [Concomitant]
     Active Substance: LOSARTAN
  6. VITAMIN D [Concomitant]
     Active Substance: VITAMIN D NOS
  7. TAMSULOSIN [Concomitant]
     Active Substance: TAMSULOSIN
  8. GABAPENTIN. [Concomitant]
     Active Substance: GABAPENTIN
  9. FISH OIL [Concomitant]
     Active Substance: FISH OIL
  10. PROPRANOLOL [Concomitant]
     Active Substance: PROPRANOLOL HYDROCHLORIDE
  11. DULOXETINE. [Concomitant]
     Active Substance: DULOXETINE
  12. FENTANYL TRANSDERMAL SYSTEM [Concomitant]
     Active Substance: FENTANYL
  13. ALPHA GPC [Concomitant]

REACTIONS (2)
  - Urinary tract infection [None]
  - Blood pressure increased [None]

NARRATIVE: CASE EVENT DATE: 20210708
